FAERS Safety Report 17404206 (Version 2)
Quarter: 2020Q1

REPORT INFORMATION
  Report Type: Spontaneous
  Country: US (occurrence: US)
  Receive Date: 20200211
  Receipt Date: 20200309
  Transmission Date: 20200409
  Serious: No
  Sender: FDA-Public Use
  Company Number: US-JNJFOC-20200214936

PATIENT
  Sex: Male

DRUGS (1)
  1. RISPERDAL CONSTA [Suspect]
     Active Substance: RISPERIDONE
     Indication: PRODUCT USED FOR UNKNOWN INDICATION
     Dosage: INJECTION PERFORMED ON 03/FEB/2020
     Route: 030

REACTIONS (2)
  - Therapeutic product effect decreased [Unknown]
  - Product storage error [Unknown]

NARRATIVE: CASE EVENT DATE: 2020
